FAERS Safety Report 6426398-0 (Version None)
Quarter: 2009Q4

REPORT INFORMATION
  Report Type: 
  Country: None (occurrence: None)
  Receive Date: 20091030
  Receipt Date: 20091015
  Transmission Date: 20100525
  Serious: Yes (Death, Other)
  Sender: FDA-Public Use
  Company Number: 2009BI004237

PATIENT
  Age: 61 Year
  Sex: Male

DRUGS (15)
  1. ZEVALIN [Suspect]
     Indication: MANTLE CELL LYMPHOMA STAGE IV
     Dosage: 659 MBQ; 1X, IV
     Route: 042
     Dates: start: 20081007, end: 20081014
  2. RITUXIMAB [Concomitant]
  3. POLARAMINE [Concomitant]
  4. BAKTAR [Concomitant]
  5. BARACLUDE [Concomitant]
  6. GRAN [Concomitant]
  7. OMEPRAL [Concomitant]
  8. FLUDARA [Concomitant]
  9. FLUDEOXYGLUCOSE [Concomitant]
  10. CYCLOPHOSPHAMIDE [Concomitant]
  11. RED BLOOD CELLS [Concomitant]
  12. PLATELETS [Concomitant]
  13. ETOPOSIDE [Concomitant]
  14. MELPHALAN [Concomitant]
  15. DEXAMETHASONE [Concomitant]

REACTIONS (3)
  - BONE MARROW FAILURE [None]
  - NAUSEA [None]
  - PNEUMOCYSTIS JIROVECI PNEUMONIA [None]
